FAERS Safety Report 20718065 (Version 2)
Quarter: 2022Q2

REPORT INFORMATION
  Report Type: Report from Study
  Country: US (occurrence: US)
  Receive Date: 20220418
  Receipt Date: 20220531
  Transmission Date: 20220720
  Serious: Yes (Hospitalization)
  Sender: FDA-Public Use
  Company Number: US-JNJFOC-20220213502

PATIENT
  Age: 9 Month
  Sex: Male
  Weight: 6.2 kg

DRUGS (11)
  1. BOSENTAN [Suspect]
     Active Substance: BOSENTAN
     Indication: Pulmonary hypertension
     Route: 048
  2. BUDESONIDE [Concomitant]
     Active Substance: BUDESONIDE
     Indication: Chronic respiratory disease
     Dosage: 2 PUFFS
  3. LEVALBUTEROL [Concomitant]
     Active Substance: LEVALBUTEROL
     Indication: Chronic respiratory disease
     Dosage: 2 PUFFS
  4. GABAPENTIN [Concomitant]
     Active Substance: GABAPENTIN
     Indication: Neurological symptom
  5. GABAPENTIN [Concomitant]
     Active Substance: GABAPENTIN
  6. OMEPRAZOLE [Concomitant]
     Active Substance: OMEPRAZOLE
     Indication: Gastrooesophageal reflux disease
  7. OMEPRAZOLE [Concomitant]
     Active Substance: OMEPRAZOLE
  8. AZITHROMYCIN [Concomitant]
     Active Substance: AZITHROMYCIN
     Indication: Gastrointestinal motility disorder
  9. PREDNISOLONE [Concomitant]
     Active Substance: PREDNISOLONE
  10. MELATONIN [Concomitant]
     Active Substance: MELATONIN
  11. FORMOTEROL [Concomitant]
     Active Substance: FORMOTEROL
     Dosage: 2 PUFFS

REACTIONS (4)
  - Vomiting [Recovering/Resolving]
  - Gastrointestinal tube insertion [Unknown]
  - Product use issue [Unknown]
  - Off label use [Unknown]
